FAERS Safety Report 19565407 (Version 1)
Quarter: 2021Q3

REPORT INFORMATION
  Report Type: Spontaneous
  Country: NL (occurrence: NL)
  Receive Date: 20210716
  Receipt Date: 20210716
  Transmission Date: 20211014
  Serious: Yes (Other)
  Sender: FDA-Public Use
  Company Number: NVSC2021NL155149

PATIENT
  Age: 60 Year
  Sex: Female
  Weight: 85 kg

DRUGS (5)
  1. LISINOPRIL. [Suspect]
     Active Substance: LISINOPRIL
     Indication: HYPERTENSION
     Dosage: 20 MG, QD (1X DAAGS 1X)
     Route: 065
     Dates: start: 20210414
  2. LISINOPRIL. [Interacting]
     Active Substance: LISINOPRIL
     Dosage: 10 MG, QD (BEN NU 3 DAGEN TERUG NAAR 10 MG)
     Route: 065
     Dates: start: 202106
  3. ESTRADIOL. [Concomitant]
     Active Substance: ESTRADIOL
     Indication: PRODUCT USED FOR UNKNOWN INDICATION
     Dosage: UNK (GEL, 0,6 MG/G (MILLIGRAM PER GRAM)
     Route: 065
  4. ZOPICLON [Concomitant]
     Active Substance: ZOPICLONE
     Indication: PRODUCT USED FOR UNKNOWN INDICATION
     Dosage: 3.5 MG
     Route: 065
  5. PROGESTERON [Concomitant]
     Active Substance: PROGESTERONE
     Indication: PRODUCT USED FOR UNKNOWN INDICATION
     Dosage: 100 MG (CAPSULE, 100 MG (MILLIGRAM))
     Route: 065

REACTIONS (9)
  - Chest discomfort [Recovering/Resolving]
  - Affect lability [Recovering/Resolving]
  - Headache [Recovering/Resolving]
  - Nausea [Recovering/Resolving]
  - Myalgia [Not Recovered/Not Resolved]
  - Arthralgia [Not Recovered/Not Resolved]
  - Fatigue [Not Recovered/Not Resolved]
  - Suicidal ideation [Recovering/Resolving]
  - Dizziness [Recovering/Resolving]

NARRATIVE: CASE EVENT DATE: 20210506
